FAERS Safety Report 4661796-7 (Version None)
Quarter: 2005Q2

REPORT INFORMATION
  Report Type: 
  Country: None (occurrence: None)
  Receive Date: 20050513
  Receipt Date: 20050426
  Transmission Date: 20051028
  Serious: Yes (Hospitalization)
  Sender: FDA-Public Use
  Company Number: 2005UW06735

PATIENT
  Age: 16 Year
  Sex: Male

DRUGS (2)
  1. SEROQUEL [Suspect]
     Route: 048
  2. DEPAKOTE [Suspect]

REACTIONS (2)
  - DEMENTIA [None]
  - ENCEPHALOPATHY [None]
